FAERS Safety Report 19031958 (Version 1)
Quarter: 2021Q1

REPORT INFORMATION
  Report Type: Spontaneous
  Country: US (occurrence: US)
  Receive Date: 20210319
  Receipt Date: 20210319
  Transmission Date: 20210420
  Serious: No
  Sender: FDA-Public Use
  Company Number: US-SA-2021SA093596

PATIENT
  Age: 49 Year
  Sex: Female

DRUGS (4)
  1. EPINEPHRINE. [Concomitant]
     Active Substance: EPINEPHRINE
  2. DUPIXENT [Concomitant]
     Active Substance: DUPILUMAB
  3. CALCITRIOL. [Concomitant]
     Active Substance: CALCITRIOL
  4. THYROGEN [Suspect]
     Active Substance: THYROTROPIN ALFA
     Indication: THYROID CANCER
     Dosage: 0.9 MG, QD
     Route: 030

REACTIONS (1)
  - Oropharyngeal discomfort [Unknown]
